FAERS Safety Report 7714338-3 (Version None)
Quarter: 2011Q3

REPORT INFORMATION
  Report Type: 
  Country: None (occurrence: None)
  Receive Date: 20110829
  Receipt Date: 20110817
  Transmission Date: 20111222
  Serious: No
  Sender: FDA-Public Use
  Company Number: US-BIOGENIDEC-2011BI031593

PATIENT
  Sex: Female

DRUGS (3)
  1. AVONEX [Suspect]
     Indication: MULTIPLE SCLEROSIS
     Route: 030
     Dates: start: 20030101, end: 20051115
  2. AVONEX [Suspect]
     Route: 030
     Dates: start: 20000101, end: 20030101
  3. AVONEX [Suspect]
     Route: 030
     Dates: start: 19960101, end: 20000101

REACTIONS (5)
  - VISUAL IMPAIRMENT [None]
  - URINARY INCONTINENCE [None]
  - MOBILITY DECREASED [None]
  - APHASIA [None]
  - FAECAL INCONTINENCE [None]
